FAERS Safety Report 24570566 (Version 1)
Quarter: 2024Q4

REPORT INFORMATION
  Report Type: Spontaneous
  Country: CN (occurrence: CN)
  Receive Date: 20241031
  Receipt Date: 20241031
  Transmission Date: 20250115
  Serious: Yes (Disabling, Other)
  Sender: MERCK
  Company Number: CN-009507513-2410CHN011420

PATIENT
  Age: 77 Year
  Sex: Female
  Weight: 56 kg

DRUGS (6)
  1. INVANZ [Suspect]
     Active Substance: ERTAPENEM SODIUM
     Indication: Pancreatitis acute
     Dosage: 1 GRAM, QD
     Route: 041
     Dates: start: 20240823, end: 20240828
  2. INVANZ [Suspect]
     Active Substance: ERTAPENEM SODIUM
     Dosage: 1 GRAM, QD
     Route: 041
     Dates: start: 20240830, end: 20240904
  3. OLANZAPINE [Suspect]
     Active Substance: OLANZAPINE
     Indication: Sleep disorder
     Dosage: 2.5 MILLIGRAM, QD
     Route: 048
     Dates: start: 20240829, end: 20240901
  4. OLANZAPINE [Suspect]
     Active Substance: OLANZAPINE
     Dosage: 5 MILLIGRAM, QD
     Route: 048
     Dates: start: 20240902, end: 20240904
  5. SODIUM CHLORIDE [Concomitant]
     Active Substance: SODIUM CHLORIDE
     Dosage: 100 MILLILITER
     Route: 041
     Dates: start: 20240823, end: 20240828
  6. SODIUM CHLORIDE [Concomitant]
     Active Substance: SODIUM CHLORIDE
     Dosage: 100 MILLILITER
     Route: 041
     Dates: start: 20240830, end: 20240904

REACTIONS (9)
  - Toxic encephalopathy [Recovering/Resolving]
  - Pancreatitis [Unknown]
  - Cholangitis [Unknown]
  - Azotaemia [Unknown]
  - Seizure [Unknown]
  - Depressed level of consciousness [Unknown]
  - Cyanosis [Unknown]
  - Ill-defined disorder [Unknown]
  - Somnolence [Unknown]

NARRATIVE: CASE EVENT DATE: 20240904
